FAERS Safety Report 4422638-8 (Version None)
Quarter: 2004Q3

REPORT INFORMATION
  Report Type: 
  Country: None (occurrence: None)
  Receive Date: 20040810
  Receipt Date: 20040526
  Transmission Date: 20050211
  Serious: Yes (Life-Threatening, Hospitalization)
  Sender: FDA-Public Use
  Company Number: US-MERCK-0405USA01988

PATIENT
  Age: 83 Year
  Sex: Male
  Weight: 78 kg

DRUGS (5)
  1. NORVASC [Concomitant]
     Indication: HYPERTENSION
     Route: 065
  2. ENBREL [Concomitant]
     Indication: RHEUMATOID ARTHRITIS
     Route: 058
  3. LIDODERM [Concomitant]
     Indication: BACK PAIN
     Route: 065
  4. PRINIVIL [Concomitant]
     Indication: HYPERTENSION
     Route: 048
  5. VIOXX [Suspect]
     Indication: RHEUMATOID ARTHRITIS
     Route: 048
     Dates: start: 20000101, end: 20040501

REACTIONS (5)
  - FAECES DISCOLOURED [None]
  - GASTRITIS [None]
  - HAEMATOCHEZIA [None]
  - HAEMATOCRIT DECREASED [None]
  - SYNCOPE [None]
